FAERS Safety Report 19312825 (Version 1)
Quarter: 2021Q2

REPORT INFORMATION
  Report Type: Spontaneous
  Country: US (occurrence: US)
  Receive Date: 20210526
  Receipt Date: 20210526
  Transmission Date: 20210717
  Serious: No
  Sender: FDA-Public Use
  Company Number: None

PATIENT
  Age: 67 Year
  Sex: Female
  Weight: 56.25 kg

DRUGS (9)
  1. GABAPENTIN 300 MG [Suspect]
     Active Substance: GABAPENTIN
     Indication: PAIN
     Dosage: ?          QUANTITY:1 TABLET(S);?
     Route: 048
     Dates: start: 20210501
  2. PEPCID [Concomitant]
     Active Substance: FAMOTIDINE
  3. PROBIOTIC [Concomitant]
     Active Substance: PROBIOTICS NOS
  4. PROVASTATIN [Concomitant]
  5. LOVAZA [Concomitant]
     Active Substance: OMEGA-3-ACID ETHYL ESTERS
  6. ALPHA LIPOIC ACID [Concomitant]
     Active Substance: .ALPHA.-LIPOIC ACID
  7. SENIOR ONE A DAY VITAMIN [Concomitant]
  8. MEGACE [Concomitant]
     Active Substance: MEGESTROL ACETATE
  9. VITAMIN D [Concomitant]
     Active Substance: VITAMIN D NOS

REACTIONS (1)
  - Anorgasmia [None]

NARRATIVE: CASE EVENT DATE: 20210501
